FAERS Safety Report 8514260-9 (Version None)
Quarter: 2012Q3

REPORT INFORMATION
  Report Type: 
  Country: None (occurrence: None)
  Receive Date: 20120717
  Receipt Date: 20120713
  Transmission Date: 20120928
  Serious: Yes (Death, Hospitalization)
  Sender: FDA-Public Use
  Company Number: CN-PFIZER INC-2012168804

PATIENT
  Age: 53 Year
  Sex: Male

DRUGS (1)
  1. SUTENT [Suspect]
     Indication: RENAL CELL CARCINOMA
     Dosage: UNK

REACTIONS (3)
  - VOMITING [None]
  - ORGAN FAILURE [None]
  - DUODENAL NEOPLASM [None]
